FAERS Safety Report 8828040 (Version 2)
Quarter: 2012Q4

REPORT INFORMATION
  Report Type: 
  Country: JP (occurrence: JP)
  Receive Date: 20121008
  Receipt Date: 20121122
  Transmission Date: 20130627
  Serious: Yes (Other)
  Sender: FDA-Public Use
  Company Number: PHHY2012JP086272

PATIENT
  Sex: Female

DRUGS (6)
  1. SIMULECT [Suspect]
     Indication: RENAL TRANSPLANT
     Dosage: 20 mg, UNK
     Route: 040
     Dates: start: 20120910
  2. SIMULECT [Suspect]
     Dosage: 20 mg, UNK
     Route: 041
     Dates: start: 20120915
  3. NEORAL [Suspect]
     Indication: RENAL TRANSPLANT
     Dosage: 6 mg/kg, daily
     Route: 048
     Dates: start: 20120906
  4. SANDIMMUN [Suspect]
     Indication: RENAL TRANSPLANT
     Dosage: UNK UKN, UNK
     Route: 042
     Dates: start: 20120910
  5. CELLCEPT [Suspect]
     Indication: RENAL TRANSPLANT
     Dosage: 1500 mg, daily
     Route: 048
     Dates: start: 20120906
  6. RITUXAN [Suspect]
     Indication: RENAL TRANSPLANT
     Dosage: 200 mg, daily
     Route: 042
     Dates: start: 20120906

REACTIONS (2)
  - Thrombotic microangiopathy [Unknown]
  - Platelet count decreased [Recovered/Resolved]
